FAERS Safety Report 6811886-5 (Version None)
Quarter: 2010Q3

REPORT INFORMATION
  Report Type: 
  Country: None (occurrence: None)
  Receive Date: 20100701
  Receipt Date: 20100618
  Transmission Date: 20110219
  Serious: Yes (Hospitalization)
  Sender: FDA-Public Use
  Company Number: PHHY2010CA40533

PATIENT
  Sex: Female

DRUGS (1)
  1. ACLASTA [Suspect]
     Dosage: 5 MG ONCE YEARLY
     Route: 042
     Dates: start: 20090506

REACTIONS (2)
  - CEREBROVASCULAR ACCIDENT [None]
  - DENTAL CARE [None]
